FAERS Safety Report 21708908 (Version 2)
Quarter: 2023Q1

REPORT INFORMATION
  Report Type: Spontaneous
  Country: PL (occurrence: PL)
  Receive Date: 20221210
  Receipt Date: 20230127
  Transmission Date: 20230417
  Serious: Yes (Hospitalization)
  Sender: FDA-Public Use
  Company Number: PL-PFM-2022-08218

PATIENT
  Age: 47 Year
  Sex: Male

DRUGS (3)
  1. ACETAMINOPHEN [Suspect]
     Active Substance: ACETAMINOPHEN
     Indication: Infection
     Dosage: UNK
     Route: 065
     Dates: start: 2020
  2. DEXTROMETHORPHAN HYDROBROMIDE [Suspect]
     Active Substance: DEXTROMETHORPHAN HYDROBROMIDE
     Indication: Infection
     Dosage: UNK
     Route: 065
     Dates: start: 2020
  3. PSEUDOEPHEDRINE [Suspect]
     Active Substance: PSEUDOEPHEDRINE
     Indication: Infection
     Dosage: UNK
     Route: 065
     Dates: start: 2020

REACTIONS (6)
  - Psychotic disorder [Recovered/Resolved]
  - Vitamin D deficiency [Unknown]
  - Hypertension [Unknown]
  - Borrelia test positive [Unknown]
  - Electroencephalogram abnormal [Unknown]
  - Retention cyst [Unknown]
